FAERS Safety Report 23897871 (Version 1)
Quarter: 2024Q2

REPORT INFORMATION
  Report Type: Spontaneous
  Country: US (occurrence: US)
  Receive Date: 20240524
  Receipt Date: 20240524
  Transmission Date: 20240716
  Serious: No
  Sender: FDA-Public Use
  Company Number: US-Calliditas-2024CAL00772

PATIENT
  Age: 51 Year
  Sex: Male

DRUGS (2)
  1. TARPEYO [Suspect]
     Active Substance: BUDESONIDE
     Indication: Nephritic syndrome
     Route: 048
     Dates: start: 20240409
  2. LOSARTAN [Concomitant]
     Active Substance: LOSARTAN

REACTIONS (2)
  - Heart rate irregular [Unknown]
  - Off label use [Unknown]
